FAERS Safety Report 8177702-7 (Version None)
Quarter: 2012Q1

REPORT INFORMATION
  Report Type: 
  Country: None (occurrence: None)
  Receive Date: 20120301
  Receipt Date: 20120228
  Transmission Date: 20120608
  Serious: Yes (Death)
  Sender: FDA-Public Use
  Company Number: PHHY2012BD017194

PATIENT
  Age: 82 Year

DRUGS (1)
  1. EXELON [Suspect]
     Indication: DEMENTIA
     Dosage: UNK
     Dates: start: 20101201, end: 20120221

REACTIONS (2)
  - DEATH [None]
  - PYREXIA [None]
